FAERS Safety Report 8579433-8 (Version None)
Quarter: 2012Q3

REPORT INFORMATION
  Report Type: 
  Country: None (occurrence: None)
  Receive Date: 20120808
  Receipt Date: 20120725
  Transmission Date: 20120928
  Serious: No
  Sender: FDA-Public Use
  Company Number: US-BAYER-2012-076007

PATIENT
  Age: 2 Year
  Sex: Male
  Weight: 14 kg

DRUGS (1)
  1. NAPROXEN (ALEVE) [Suspect]
     Dosage: 3 DF, UNK
     Route: 048
     Dates: start: 20120725, end: 20120725

REACTIONS (1)
  - NO ADVERSE EVENT [None]
